FAERS Safety Report 10051349 (Version 2)
Quarter: 2014Q2

REPORT INFORMATION
  Report Type: Spontaneous
  Country: JP (occurrence: JP)
  Receive Date: 20140401
  Receipt Date: 20140401
  Transmission Date: 20141212
  Serious: Yes (Hospitalization, Other)
  Sender: FDA-Public Use
  Company Number: JP-PFIZER INC-2014052953

PATIENT
  Age: 65 Year
  Sex: Female
  Weight: 50 kg

DRUGS (3)
  1. LIPITOR [Suspect]
     Indication: HYPERLIPIDAEMIA
     Dosage: 10 MG, DAILY
     Route: 048
     Dates: start: 201309, end: 20140219
  2. PERSANTIN [Suspect]
     Indication: RENAL IMPAIRMENT
     Dosage: 150 MG, 1X/DAY
     Route: 048
     Dates: start: 201309, end: 20140219
  3. ATELEC [Concomitant]
     Indication: HYPERTENSION
     Dosage: 5 MG, 1X/DAY
     Route: 048
     Dates: start: 201309

REACTIONS (1)
  - Liver disorder [Recovered/Resolved]
